FAERS Safety Report 8217613-1 (Version None)
Quarter: 2012Q1

REPORT INFORMATION
  Report Type: 
  Country: None (occurrence: None)
  Receive Date: 20120319
  Receipt Date: 20120319
  Transmission Date: 20120608
  Serious: Yes (Other)
  Sender: FDA-Public Use
  Company Number: None

PATIENT
  Sex: Female
  Weight: 55.791 kg

DRUGS (2)
  1. ATIVAN [Suspect]
     Indication: DRUG INEFFECTIVE
     Dosage: .5MG
     Route: 048
     Dates: start: 20100908, end: 20120317
  2. ATIVAN [Suspect]
     Indication: ANXIETY
     Dosage: .5MG
     Route: 048
     Dates: start: 20100908, end: 20120317

REACTIONS (5)
  - DRUG INEFFECTIVE [None]
  - INSOMNIA [None]
  - ANXIETY [None]
  - DISEASE RECURRENCE [None]
  - PRODUCT QUALITY ISSUE [None]
